FAERS Safety Report 10242624 (Version 2)
Quarter: 2014Q2

REPORT INFORMATION
  Report Type: Spontaneous
  Country: US (occurrence: US)
  Receive Date: 20140617
  Receipt Date: 20140627
  Transmission Date: 20141212
  Serious: Yes (Other)
  Sender: FDA-Public Use
  Company Number: US-LUNDBECK-DKLU1100939

PATIENT
  Sex: Male

DRUGS (3)
  1. SABRIL (FOR ORAL SOLUTION) [Suspect]
     Indication: TUBEROUS SCLEROSIS
     Route: 048
     Dates: start: 20140509, end: 20140609
  2. SABRIL (FOR ORAL SOLUTION) [Suspect]
     Dates: start: 20140403
  3. SABRIL (FOR ORAL SOLUTION) [Suspect]

REACTIONS (1)
  - Convulsion [Unknown]
